FAERS Safety Report 17942756 (Version 1)
Quarter: 2020Q2

REPORT INFORMATION
  Report Type: Spontaneous
  Country: ES (occurrence: ES)
  Receive Date: 20200625
  Receipt Date: 20200625
  Transmission Date: 20200714
  Serious: Yes (Hospitalization)
  Sender: FDA-Public Use
  Company Number: ES-TEVA-2020-ES-1791027

PATIENT
  Age: 58 Year
  Sex: Male

DRUGS (5)
  1. AZITROMICINA (7019A) [Suspect]
     Active Substance: AZITHROMYCIN
     Indication: CORONAVIRUS INFECTION
     Route: 048
     Dates: start: 20200402, end: 20200407
  2. ENOXAPARINA (2482A) [Concomitant]
     Active Substance: ENOXAPARIN
     Dates: start: 20200402
  3. HIDROXICLOROQUINA (2143A) [Suspect]
     Active Substance: HYDROXYCHLOROQUINE
     Indication: CORONAVIRUS INFECTION
     Route: 048
     Dates: start: 20200402, end: 20200407
  4. KALETRA [Concomitant]
     Active Substance: LOPINAVIR\RITONAVIR
     Dates: start: 20200402, end: 20200403
  5. INTERFERON BETA-1B (2305OD) [Suspect]
     Active Substance: INTERFERON BETA-1B
     Indication: CORONAVIRUS INFECTION
     Dosage: 250 MG
     Dates: start: 20200403, end: 20200406

REACTIONS (2)
  - Diarrhoea [Recovered/Resolved]
  - Hallucination [Recovered/Resolved]

NARRATIVE: CASE EVENT DATE: 20200406
